FAERS Safety Report 13576999 (Version 5)
Quarter: 2017Q3

REPORT INFORMATION
  Report Type: Spontaneous
  Country: KR (occurrence: KR)
  Receive Date: 20170524
  Receipt Date: 20170802
  Transmission Date: 20171127
  Serious: Yes (Other)
  Sender: FDA-Public Use
  Company Number: KR-009507513-1705KOR010541

PATIENT
  Age: 87 Year
  Sex: Male
  Weight: 60.5 kg

DRUGS (37)
  1. EMEND (FOSAPREPITANT DIMEGLUMINE) [Suspect]
     Active Substance: FOSAPREPITANT DIMEGLUMINE
     Dosage: 150 MG, ONCE
     Route: 042
     Dates: start: 20170321, end: 20170321
  2. LACTULOSE. [Concomitant]
     Active Substance: LACTULOSE
     Indication: CONSTIPATION
     Dosage: 1 PK, TID
     Route: 048
     Dates: start: 20170216
  3. CODENAL (CHLORPHENIRAMINE MALEATE (+) DIHYDROCODEINE BITARTRATE (+) GU [Concomitant]
     Indication: COUGH
     Dosage: 1 TABLET, BID
     Route: 048
     Dates: start: 20170203, end: 20170423
  4. CRAVIT [Concomitant]
     Active Substance: LEVOFLOXACIN
     Indication: PROPHYLAXIS
     Dosage: 1 TABLET, 250 MG, QD
     Route: 048
     Dates: start: 20170217, end: 20170502
  5. MUTERAN [Concomitant]
     Active Substance: ACETYLCYSTEINE
     Indication: PRODUCTIVE COUGH
     Dosage: 600 MG (3 CAPS), BID
     Route: 048
     Dates: start: 20170410, end: 20170412
  6. NORZYME [Concomitant]
     Indication: PROPHYLAXIS
     Dosage: 1 CAPSULE, TID
     Route: 048
     Dates: start: 20170210, end: 20170321
  7. ACTINAMIDE [Concomitant]
     Indication: PROPHYLAXIS
     Dosage: 1 MG, QD
     Route: 042
     Dates: start: 20170227, end: 20170417
  8. EMEND (FOSAPREPITANT DIMEGLUMINE) [Suspect]
     Active Substance: FOSAPREPITANT DIMEGLUMINE
     Dosage: 150 MG, ONCE
     Route: 042
     Dates: start: 20170411, end: 20170411
  9. ALIMTA [Concomitant]
     Active Substance: PEMETREXED DISODIUM
     Dosage: 580 MG, ONCE, CYCLE 3
     Route: 042
     Dates: start: 20170411, end: 20170411
  10. EMEND (FOSAPREPITANT DIMEGLUMINE) [Suspect]
     Active Substance: FOSAPREPITANT DIMEGLUMINE
     Indication: PROPHYLAXIS OF NAUSEA AND VOMITING
     Dosage: 150 MG, ONCE
     Route: 042
     Dates: start: 20170228, end: 20170228
  11. ALIMTA [Concomitant]
     Active Substance: PEMETREXED DISODIUM
     Indication: LUNG NEOPLASM MALIGNANT
     Dosage: 580 MG, ONCE, CYCLE 1
     Route: 042
     Dates: start: 20170228, end: 20170228
  12. CISPLATIN. [Concomitant]
     Active Substance: CISPLATIN
     Indication: LUNG NEOPLASM MALIGNANT
     Dosage: STRENGTH: 50MG/100ML; 65 MG, ONCE, CYCLE 1
     Route: 042
     Dates: start: 20170228, end: 20170228
  13. DEXAMETHASONE. [Concomitant]
     Active Substance: DEXAMETHASONE
     Dosage: 4 MG, BID
     Route: 048
     Dates: start: 20170501, end: 20170502
  14. ALOXI [Concomitant]
     Active Substance: PALONOSETRON HYDROCHLORIDE
     Indication: PREMEDICATION
     Dosage: 0.25 MG, ONCE
     Route: 042
     Dates: start: 20170228, end: 20170228
  15. ALOXI [Concomitant]
     Active Substance: PALONOSETRON HYDROCHLORIDE
     Dosage: 0.25 MG, ONCE
     Route: 042
     Dates: start: 20170502, end: 20170502
  16. HEBRON F [Concomitant]
     Indication: COUGH
     Dosage: 2 TABLET (2 DF), BID
     Route: 048
     Dates: start: 20170203, end: 20170502
  17. MEGACE [Concomitant]
     Active Substance: MEGESTROL ACETATE
     Indication: DECREASED APPETITE
     Dosage: 1 PK, QD
     Route: 048
     Dates: start: 20170203
  18. NEXIUM [Concomitant]
     Active Substance: ESOMEPRAZOLE MAGNESIUM
     Indication: PROPHYLAXIS
     Dosage: 1 TABLET (20 MG), QD
     Route: 048
     Dates: start: 20170203, end: 20170314
  19. SYNATURA [Concomitant]
     Indication: PRODUCTIVE COUGH
     Dosage: 1 PK, BID
     Route: 048
     Dates: start: 20170207
  20. ALIMTA [Concomitant]
     Active Substance: PEMETREXED DISODIUM
     Dosage: 580 MG, ONCE, CYCLE 2
     Route: 042
     Dates: start: 20170321, end: 20170321
  21. CISPLATIN. [Concomitant]
     Active Substance: CISPLATIN
     Dosage: STRENGTH: 50MG/100ML; 65 MG, ONCE, CYCLE 3
     Route: 042
     Dates: start: 20170411, end: 20170411
  22. CISPLATIN. [Concomitant]
     Active Substance: CISPLATIN
     Dosage: STRENGTH: 50MG/100ML; 65 MG, ONCE, CYCLE 4
     Route: 042
     Dates: start: 20170502, end: 20170502
  23. MACPERAN [Concomitant]
     Active Substance: METOCLOPRAMIDE HYDROCHLORIDE
     Indication: PROPHYLAXIS OF NAUSEA AND VOMITING
     Dosage: 1 DF, QD
     Route: 048
     Dates: start: 20170321, end: 20170323
  24. WARFARIN SODIUM. [Concomitant]
     Active Substance: WARFARIN SODIUM
     Indication: PULMONARY EMBOLISM
     Dosage: 1 TABLET (2 MG), QD
     Route: 048
     Dates: start: 20170204
  25. EMEND (FOSAPREPITANT DIMEGLUMINE) [Suspect]
     Active Substance: FOSAPREPITANT DIMEGLUMINE
     Dosage: 150 MG, ONCE
     Route: 042
     Dates: start: 20170502, end: 20170502
  26. ALIMTA [Concomitant]
     Active Substance: PEMETREXED DISODIUM
     Dosage: 580 MG, ONCE, CYCLE 4
     Route: 042
     Dates: start: 20170502, end: 20170502
  27. CISPLATIN. [Concomitant]
     Active Substance: CISPLATIN
     Dosage: STRENGTH: 50MG/100ML; 65 MG, ONCE, CYCLE 2
     Route: 042
     Dates: start: 20170321, end: 20170321
  28. DEXAMETHASONE. [Concomitant]
     Active Substance: DEXAMETHASONE
     Indication: PREMEDICATION
     Dosage: 4 MG, BID
     Route: 048
     Dates: start: 20170320, end: 20170322
  29. ALOXI [Concomitant]
     Active Substance: PALONOSETRON HYDROCHLORIDE
     Dosage: 0.25 MG, ONCE
     Route: 042
     Dates: start: 20170321, end: 20170321
  30. ALOXI [Concomitant]
     Active Substance: PALONOSETRON HYDROCHLORIDE
     Dosage: 0.25 MG, ONCE
     Route: 042
     Dates: start: 20170411, end: 20170411
  31. MAGO [Concomitant]
     Indication: CONSTIPATION
     Dosage: 1 CAPSULE (250 MG), TID
     Route: 048
     Dates: start: 20170203
  32. PANCRON (DIMETHICONE (+) HEMICELLULASE (+) OX BILE EXTRACT (+) PANCREA [Concomitant]
     Indication: PROPHYLAXIS
     Dosage: 1 TABLET, TID
     Route: 048
     Dates: start: 20170203, end: 20170329
  33. FRAGMIN [Concomitant]
     Active Substance: DALTEPARIN SODIUM
     Indication: PULMONARY EMBOLISM
     Dosage: STRENGTH: 10000IU/0.4ML; 0.4 ML, QD
     Route: 058
     Dates: start: 20170310
  34. DEXAMETHASONE. [Concomitant]
     Active Substance: DEXAMETHASONE
     Dosage: 4 MG, BID
     Route: 048
     Dates: start: 20170410, end: 20170411
  35. FOLIC ACID. [Concomitant]
     Active Substance: FOLIC ACID
     Indication: PROPHYLAXIS
     Dosage: 1 TABLET (1 MG), QD
     Route: 048
     Dates: start: 20170227
  36. LANSTON [Concomitant]
     Active Substance: LANSOPRAZOLE
     Indication: COUGH
     Dosage: 15 MG, QD
     Route: 048
     Dates: start: 20170411, end: 20170502
  37. LASIX [Concomitant]
     Active Substance: FUROSEMIDE
     Indication: PROPHYLAXIS
     Dosage: 20 MG, QD
     Dates: start: 20170324, end: 20170326

REACTIONS (2)
  - Hiccups [Recovered/Resolved]
  - Bronchiectasis [Recovered/Resolved]

NARRATIVE: CASE EVENT DATE: 20170324
